FAERS Safety Report 7276155-0 (Version None)
Quarter: 2011Q1

REPORT INFORMATION
  Report Type: 
  Country: None (occurrence: None)
  Receive Date: 20110204
  Receipt Date: 20110124
  Transmission Date: 20110831
  Serious: Yes (Other)
  Sender: FDA-Public Use
  Company Number: PHHY2011DE06557

PATIENT
  Sex: Female
  Weight: 63 kg

DRUGS (7)
  1. DOCETAXEL [Concomitant]
     Dosage: UNK
     Dates: start: 20100108, end: 20100514
  2. IBUPROFEN [Concomitant]
     Dosage: 1200 MG, PER DAY
     Dates: start: 20101006, end: 20101202
  3. AMOXICILLIN [Concomitant]
     Dosage: 1000 MG, PER DAY
     Dates: start: 20101126, end: 20101216
  4. BEVACIZUMAB [Concomitant]
     Dosage: 630 MG, DAILY
     Dates: start: 20100109, end: 20100515
  5. METRONIDAZOLE [Concomitant]
     Dosage: 400 MG, PER DAY
     Dates: start: 20101126, end: 20101216
  6. FASLODEX [Concomitant]
     Dosage: UNK
     Dates: start: 20091229
  7. ZOMETA [Suspect]
     Indication: BONE DISORDER
     Dosage: 4 MG, EVERY 4 WEEKS
     Route: 042
     Dates: start: 20091229, end: 20100915

REACTIONS (4)
  - PAIN IN JAW [None]
  - NEOPLASM MALIGNANT [None]
  - OSTEONECROSIS OF JAW [None]
  - METASTASES TO BONE [None]
